FAERS Safety Report 8189883-X (Version None)
Quarter: 2012Q1

REPORT INFORMATION
  Report Type: 
  Country: None (occurrence: None)
  Receive Date: 20120305
  Receipt Date: 20120219
  Transmission Date: 20120608
  Serious: Yes (Hospitalization)
  Sender: FDA-Public Use
  Company Number: UTC-015778

PATIENT
  Age: 42 Year
  Sex: Female

DRUGS (2)
  1. REMODULIN [Suspect]
     Dosage: INTRAVENOUS
  2. DIURETICS (DIURETICS) [Concomitant]

REACTIONS (7)
  - DIALYSIS [None]
  - VOMITING [None]
  - DEPRESSION [None]
  - DEHYDRATION [None]
  - FLUID INTAKE REDUCED [None]
  - HYPOPHAGIA [None]
  - DIARRHOEA [None]
